FAERS Safety Report 8956312 (Version 1)
Quarter: 2012Q4

REPORT INFORMATION
  Report Type: Report from Study
  Country: MX (occurrence: MX)
  Receive Date: 20121210
  Receipt Date: 20121210
  Transmission Date: 20130627
  Serious: Yes (Other)
  Sender: FDA-Public Use
  Company Number: MX-BAYER-2012-127674

PATIENT
  Age: 41 Year
  Sex: Male

DRUGS (7)
  1. BETAFERON [Suspect]
     Indication: MULTIPLE SCLEROSIS
     Dosage: 0.25 mg, TIW
     Route: 058
     Dates: start: 2010
  2. ACETAMINOPHEN [Concomitant]
     Dosage: 1 DF, UNK
  3. VITAMIN B COMPLEX [Concomitant]
     Dosage: UNK
  4. OMEPRAZOL [Concomitant]
     Dosage: UNK
  5. RANITIDINE [Concomitant]
     Dosage: UNK
  6. SENNA GLYCOSIDES [Concomitant]
     Dosage: UNK
  7. DEXTROPROPOXYPHENE [Concomitant]
     Dosage: UNK

REACTIONS (4)
  - Multiple sclerosis relapse [Not Recovered/Not Resolved]
  - Pyrexia [Not Recovered/Not Resolved]
  - Malaise [Not Recovered/Not Resolved]
  - Gait disturbance [Not Recovered/Not Resolved]
